FAERS Safety Report 6550390-9 (Version None)
Quarter: 2010Q1

REPORT INFORMATION
  Report Type: 
  Country: None (occurrence: None)
  Receive Date: 20100125
  Receipt Date: 20100114
  Transmission Date: 20100710
  Serious: Yes (Hospitalization)
  Sender: FDA-Public Use
  Company Number: FR-PFIZER INC-2010005211

PATIENT
  Age: 41 Year
  Sex: Female

DRUGS (2)
  1. CELEBREX [Suspect]
     Dosage: UNK
     Dates: end: 20090829
  2. PROGESTOGEL [Concomitant]
     Dosage: UNK
     Route: 003
     Dates: start: 20090831

REACTIONS (5)
  - ANAPHYLACTIC SHOCK [None]
  - HYPOTENSION [None]
  - OEDEMA [None]
  - PRURITUS GENERALISED [None]
  - URTICARIA [None]
